FAERS Safety Report 5805569-8 (Version None)
Quarter: 2008Q3

REPORT INFORMATION
  Report Type: 
  Country: None (occurrence: None)
  Receive Date: 20080710
  Receipt Date: 20080609
  Transmission Date: 20090109
  Serious: No
  Sender: FDA-Public Use
  Company Number: US-BAYER-200825968NA

PATIENT
  Age: 30 Year
  Sex: Female
  Weight: 93 kg

DRUGS (1)
  1. MIRENA [Suspect]
     Indication: CONTRACEPTION
     Route: 015
     Dates: start: 20060814, end: 20080501

REACTIONS (3)
  - AMENORRHOEA [None]
  - DYSPAREUNIA [None]
  - POST PROCEDURAL HAEMORRHAGE [None]
